FAERS Safety Report 9303776 (Version 2)
Quarter: 2013Q3

REPORT INFORMATION
  Report Type: Spontaneous
  Country: IT (occurrence: IT)
  Receive Date: 20130522
  Receipt Date: 20130715
  Transmission Date: 20140515
  Serious: Yes (Hospitalization)
  Sender: FDA-Public Use
  Company Number: IT-TEVA-405637ISR

PATIENT
  Age: 57 Year
  Sex: Female
  Weight: 75 kg

DRUGS (3)
  1. FLUOROURACILE TEVA [Suspect]
     Indication: ADENOCARCINOMA OF COLON
     Dosage: 1810 MILLIGRAM DAILY; CONCENTRATE FOR INJECTABLE SOLUTION
     Route: 042
     Dates: start: 20121020, end: 20121124
  2. AVASTIN [Suspect]
     Indication: ADENOCARCINOMA OF COLON
     Dosage: 370 MILLIGRAM DAILY; CONCENTRATE FOR INJECTABLE SOLUTION
     Route: 042
     Dates: start: 20121020, end: 20121124
  3. RIVOTRIL [Concomitant]
     Route: 048

REACTIONS (4)
  - Diarrhoea [Recovered/Resolved]
  - Hypokalaemia [Recovered/Resolved]
  - Bronchitis [Recovered/Resolved]
  - Pyrexia [Recovered/Resolved]
